FAERS Safety Report 7365164-9 (Version None)
Quarter: 2011Q1

REPORT INFORMATION
  Report Type: 
  Country: None (occurrence: None)
  Receive Date: 20110321
  Receipt Date: 20110315
  Transmission Date: 20110831
  Serious: Yes (Other)
  Sender: FDA-Public Use
  Company Number: US-RB-002172-10

PATIENT
  Age: 56 Year
  Sex: Female

DRUGS (5)
  1. SUBOXONE [Suspect]
     Indication: PRODUCT USED FOR UNKNOWN INDICATION
     Dosage: DOSING INFORMATION UNKNOWN
     Route: 065
  2. SUBUTEX [Suspect]
     Indication: PRODUCT USED FOR UNKNOWN INDICATION
     Dosage: DOSING INFORMATION UNKNOWN
     Route: 065
  3. BENZODIAZEPINE [Suspect]
     Indication: PRODUCT USED FOR UNKNOWN INDICATION
     Dosage: UNKNOWN DOSING DETAILS
     Route: 065
  4. SUBOXONE [Suspect]
     Dosage: UNKNOWN DOSING INFORMATION
     Route: 065
  5. SUBOXONE [Suspect]
     Indication: PRODUCT USED FOR UNKNOWN INDICATION
     Dosage: DOSING INFORMATION UNKNOWN
     Route: 065

REACTIONS (15)
  - CHRONIC OBSTRUCTIVE PULMONARY DISEASE [None]
  - PAIN [None]
  - SYNCOPE [None]
  - TYPE 2 DIABETES MELLITUS [None]
  - LOSS OF CONSCIOUSNESS [None]
  - PARALYSIS [None]
  - DYSPNOEA [None]
  - VISION BLURRED [None]
  - HYPERHIDROSIS [None]
  - ADVERSE EVENT [None]
  - HYPERSOMNIA [None]
  - CARDIAC DISORDER [None]
  - ARTHROPATHY [None]
  - PANIC ATTACK [None]
  - CONSTIPATION [None]
